FAERS Safety Report 7307287-6 (Version None)
Quarter: 2011Q1

REPORT INFORMATION
  Report Type: 
  Country: None (occurrence: None)
  Receive Date: 20110120
  Receipt Date: 20100128
  Transmission Date: 20110831
  Serious: Yes (Hospitalization)
  Sender: FDA-Public Use
  Company Number: WAES 1001USA03684

PATIENT
  Age: 71 Year
  Sex: Male

DRUGS (3)
  1. INVANZ [Suspect]
     Indication: URINARY TRACT INFECTION
     Dosage: 1 GM/DAILY/IV, 1 GM/DAILY/IV, 1 GM/DAILY/IV
     Route: 042
     Dates: start: 20100120
  2. INVANZ [Suspect]
     Indication: URINARY TRACT INFECTION
     Dosage: 1 GM/DAILY/IV, 1 GM/DAILY/IV, 1 GM/DAILY/IV
     Route: 042
     Dates: start: 20100121
  3. INVANZ [Suspect]
     Indication: URINARY TRACT INFECTION
     Dosage: 1 GM/DAILY/IV, 1 GM/DAILY/IV, 1 GM/DAILY/IV
     Route: 042
     Dates: start: 20100122

REACTIONS (1)
  - CONVULSION [None]
